FAERS Safety Report 16565508 (Version 1)
Quarter: 2019Q3

REPORT INFORMATION
  Report Type: Spontaneous
  Country: US (occurrence: US)
  Receive Date: 20190712
  Receipt Date: 20190712
  Transmission Date: 20191004
  Serious: Yes (Hospitalization)
  Sender: FDA-Public Use
  Company Number: US-ELI_LILLY_AND_COMPANY-US201907001654

PATIENT
  Age: 94 Year
  Sex: Female

DRUGS (1)
  1. VERZENIO [Suspect]
     Active Substance: ABEMACICLIB
     Indication: NEOPLASM MALIGNANT
     Dosage: 50 MG, BID
     Route: 048
     Dates: start: 20181213

REACTIONS (1)
  - Necrosis [Unknown]

NARRATIVE: CASE EVENT DATE: 2019
